FAERS Safety Report 6242444-1 (Version None)
Quarter: 2009Q2

REPORT INFORMATION
  Report Type: 
  Country: None (occurrence: None)
  Receive Date: 20090624
  Receipt Date: 20090617
  Transmission Date: 20091009
  Serious: Yes (Hospitalization)
  Sender: FDA-Public Use
  Company Number: US-ASTRAZENECA-2009UW15754

PATIENT
  Age: 78 Year
  Sex: Female
  Weight: 77.1 kg

DRUGS (8)
  1. PRILOSEC OTC [Suspect]
     Indication: GASTROOESOPHAGEAL REFLUX DISEASE
     Route: 048
     Dates: start: 20080301, end: 20090513
  2. SYNTHROID [Concomitant]
  3. AMLODIPINE [Concomitant]
  4. ZETIA [Concomitant]
  5. MAVIK [Concomitant]
  6. DOXYCYCLINE MONOHYDRATE [Concomitant]
  7. PRILOSEC [Concomitant]
  8. ASPIRIN [Concomitant]

REACTIONS (9)
  - ASTHENIA [None]
  - COUGH [None]
  - DYSPNOEA [None]
  - EAR DISORDER [None]
  - FATIGUE [None]
  - INCREASED UPPER AIRWAY SECRETION [None]
  - NASAL CONGESTION [None]
  - TONGUE DISORDER [None]
  - WHEEZING [None]
